FAERS Safety Report 5168076-4 (Version None)
Quarter: 2006Q4

REPORT INFORMATION
  Report Type: 
  Country: None (occurrence: None)
  Receive Date: 20061208
  Receipt Date: 20060911
  Transmission Date: 20070319
  Serious: Yes (Other)
  Sender: FDA-Public Use
  Company Number: US-GLAXOSMITHKLINE-A0619760A

PATIENT
  Age: 63 Year
  Sex: Male

DRUGS (3)
  1. AVANDAMET [Suspect]
     Dosage: 1TAB PER DAY
     Route: 048
  2. LOTREL [Suspect]
     Dosage: 20MG PER DAY
     Route: 048
     Dates: end: 20060812
  3. GEMFIBROZIL [Concomitant]

REACTIONS (3)
  - DIZZINESS [None]
  - HAEMOGLOBIN DECREASED [None]
  - HEPATIC ENZYME INCREASED [None]
